FAERS Safety Report 4960513-0 (Version None)
Quarter: 2006Q2

REPORT INFORMATION
  Report Type: 
  Country: None (occurrence: None)
  Receive Date: 20060403
  Receipt Date: 20060322
  Transmission Date: 20061013
  Serious: Yes (Death)
  Sender: FDA-Public Use
  Company Number: GB-JNJFOC-20060307273

PATIENT
  Sex: Male

DRUGS (8)
  1. TOPAMAX [Suspect]
     Route: 065
  2. EPILIUM [Concomitant]
     Route: 065
  3. NITRAZEPAM [Concomitant]
     Route: 065
  4. STERIODS [Concomitant]
     Route: 048
  5. ERYTHROMYCIN [Concomitant]
     Route: 065
  6. CEPHALOSPORIN [Concomitant]
     Route: 065
  7. TRIMETHOPRIM [Concomitant]
     Route: 065
  8. SODIUM PICOSULFATE [Concomitant]
     Route: 065

REACTIONS (1)
  - DEATH [None]
